FAERS Safety Report 6401446-2 (Version None)
Quarter: 2009Q4

REPORT INFORMATION
  Report Type: 
  Country: None (occurrence: None)
  Receive Date: 20091015
  Receipt Date: 20091012
  Transmission Date: 20100525
  Serious: Yes (Hospitalization)
  Sender: FDA-Public Use
  Company Number: IT-BRISTOL-MYERS SQUIBB COMPANY-14814909

PATIENT
  Age: 72 Year
  Sex: Male
  Weight: 81 kg

DRUGS (10)
  1. CISPLATIN [Suspect]
     Indication: NON-SMALL CELL LUNG CANCER
     Route: 042
     Dates: start: 20090819
  2. ALIMTA [Suspect]
     Indication: NON-SMALL CELL LUNG CANCER
     Route: 042
     Dates: start: 20090819
  3. FOLIC ACID [Concomitant]
     Dates: start: 20090812
  4. VITAMIN B-12 [Concomitant]
     Dates: start: 20090812
  5. DEXAMETHASONE 0.5MG TAB [Concomitant]
     Indication: PROPHYLAXIS
     Dates: start: 20090819
  6. DELTACORTENE [Concomitant]
     Dates: start: 20090811
  7. LYRICA [Concomitant]
     Dates: start: 20090811
  8. LYRICA [Concomitant]
     Dates: start: 20090811
  9. OXYCONTIN [Concomitant]
     Indication: PAIN IN EXTREMITY
     Dates: start: 20090811
  10. LANSOPRAZOLE [Concomitant]
     Indication: PROPHYLAXIS
     Dates: start: 20090811

REACTIONS (1)
  - PULMONARY EMBOLISM [None]
